FAERS Safety Report 23417623 (Version 1)
Quarter: 2024Q1

REPORT INFORMATION
  Report Type: Spontaneous
  Country: US (occurrence: US)
  Receive Date: 20240118
  Receipt Date: 20240118
  Transmission Date: 20240410
  Serious: No
  Sender: FDA-Public Use
  Company Number: US-SK LIFE SCIENCE, INC-SKPVG-2023-001136

PATIENT

DRUGS (3)
  1. XCOPRI [Suspect]
     Active Substance: CENOBAMATE
     Indication: Partial seizures
     Dosage: FIRST TITRATION PACK
     Route: 048
  2. XCOPRI [Suspect]
     Active Substance: CENOBAMATE
     Indication: Seizure
     Dosage: 50 MILLIGRAM, QD
     Route: 048
  3. XCOPRI [Suspect]
     Active Substance: CENOBAMATE
     Dosage: 100 MILLIGRAM, QD
     Route: 048

REACTIONS (7)
  - Product dose omission issue [Recovered/Resolved]
  - Weight increased [Not Recovered/Not Resolved]
  - Circumstance or information capable of leading to medication error [Unknown]
  - Drug intolerance [Unknown]
  - Intentional dose omission [Unknown]
  - Nausea [Unknown]
  - Malaise [Unknown]
